FAERS Safety Report 8001471-4 (Version None)
Quarter: 2011Q4

REPORT INFORMATION
  Report Type: 
  Country: None (occurrence: None)
  Receive Date: 20111222
  Receipt Date: 20111207
  Transmission Date: 20120403
  Serious: Yes (Other)
  Sender: FDA-Public Use
  Company Number: SE-ROCHE-1020835

PATIENT

DRUGS (4)
  1. MABTHERA [Suspect]
     Indication: MANTLE CELL LYMPHOMA
  2. LENALIDOMIDE [Suspect]
  3. LENALIDOMIDE [Suspect]
     Indication: MANTLE CELL LYMPHOMA
  4. BENDAMUSTINE [Suspect]
     Indication: MANTLE CELL LYMPHOMA

REACTIONS (2)
  - HYPERSENSITIVITY [None]
  - SKIN DISORDER [None]
